FAERS Safety Report 6921926-0 (Version None)
Quarter: 2010Q3

REPORT INFORMATION
  Report Type: 
  Country: None (occurrence: None)
  Receive Date: 20100812
  Receipt Date: 20100802
  Transmission Date: 20110219
  Serious: Yes (Death)
  Sender: FDA-Public Use
  Company Number: GB-GENENTECH-305096

PATIENT

DRUGS (4)
  1. RITUXIMAB [Suspect]
     Indication: ANTI-NEUTROPHIL CYTOPLASMIC ANTIBODY POSITIVE VASCULITIS
     Dosage: 375 MG/M2, UNK
     Route: 042
  2. CYCLOPHOSPHAMIDE [Suspect]
     Indication: ANTI-NEUTROPHIL CYTOPLASMIC ANTIBODY POSITIVE VASCULITIS
     Dosage: 15 MG/KG, UNK
     Route: 042
  3. METHYLPREDNISOLONE [Concomitant]
     Indication: ANTI-NEUTROPHIL CYTOPLASMIC ANTIBODY POSITIVE VASCULITIS
     Dosage: 2 G, UNK
     Route: 042
  4. METHYLPREDNISOLONE [Concomitant]
     Dosage: 1 G, UNK
     Route: 042

REACTIONS (10)
  - ANAEMIA [None]
  - CARDIOVASCULAR DISORDER [None]
  - DISEASE RECURRENCE [None]
  - HYPOGAMMAGLOBULINAEMIA [None]
  - INFECTION [None]
  - INFUSION RELATED REACTION [None]
  - NEUTROPENIA [None]
  - RENAL FAILURE CHRONIC [None]
  - THROMBOCYTOPENIA [None]
  - TREATMENT FAILURE [None]
